FAERS Safety Report 10048843 (Version 1)
Quarter: 2014Q1

REPORT INFORMATION
  Report Type: Spontaneous
  Country: IT (occurrence: IT)
  Receive Date: 20140331
  Receipt Date: 20140331
  Transmission Date: 20141002
  Serious: Yes (Hospitalization)
  Sender: FDA-Public Use
  Company Number: PHHY2014IT035434

PATIENT
  Age: 74 Year
  Sex: Female

DRUGS (2)
  1. METFORMIN [Suspect]
     Indication: INTENTIONAL SELF-INJURY
     Dosage: 5 G, ONCE/SINGLE
     Route: 048
     Dates: start: 20140311, end: 20140311
  2. ANSIOLIN [Concomitant]
     Indication: INSOMNIA

REACTIONS (3)
  - Hypoglycaemia [Recovered/Resolved]
  - Intentional self-injury [Recovered/Resolved]
  - Diarrhoea [Recovered/Resolved]
